FAERS Safety Report 9429140 (Version 1)
Quarter: 2013Q3

REPORT INFORMATION
  Report Type: Spontaneous
  Country: FR (occurrence: FR)
  Receive Date: 20130730
  Receipt Date: 20130730
  Transmission Date: 20140515
  Serious: Yes (Other)
  Sender: FDA-Public Use
  Company Number: FR-JNJFOC-20130716654

PATIENT
  Age: 86 Year
  Sex: Female

DRUGS (8)
  1. IXPRIM [Suspect]
     Indication: PAIN
     Dosage: 1 DOSE IN THE MORNING AND 1 DOSE IN THE EVENING
     Route: 048
     Dates: start: 20130618, end: 20130630
  2. SEROPLEX [Interacting]
     Indication: PRODUCT USED FOR UNKNOWN INDICATION
     Route: 048
     Dates: start: 20110713, end: 20130630
  3. DAFALGAN [Concomitant]
     Indication: MUSCULOSKELETAL PAIN
     Route: 048
     Dates: start: 20130618
  4. BOTULINUM TOXIN [Concomitant]
     Indication: MUSCULOSKELETAL PAIN
     Route: 065
     Dates: end: 201306
  5. LYRICA [Concomitant]
     Indication: EPILEPSY
     Route: 048
     Dates: start: 20130702
  6. LYRICA [Concomitant]
     Indication: EPILEPSY
     Route: 048
     Dates: start: 201203, end: 20130701
  7. LYRICA [Concomitant]
     Indication: NEURALGIA
     Route: 048
     Dates: start: 201203, end: 20130701
  8. LYRICA [Concomitant]
     Indication: NEURALGIA
     Route: 048
     Dates: start: 20130702

REACTIONS (2)
  - Epilepsy [Recovered/Resolved]
  - Drug interaction [Recovered/Resolved]
